FAERS Safety Report 10873542 (Version 2)
Quarter: 2015Q1

REPORT INFORMATION
  Report Type: Spontaneous
  Country: FR (occurrence: FR)
  Receive Date: 20150227
  Receipt Date: 20150311
  Transmission Date: 20150721
  Serious: Yes (Life-Threatening, Hospitalization)
  Sender: FDA-Public Use
  Company Number: FR-BAYER-2015-013573

PATIENT
  Age: 35 Year
  Sex: Female
  Weight: 62 kg

DRUGS (1)
  1. MIRENA [Suspect]
     Active Substance: LEVONORGESTREL
     Dosage: 20 MCG/24HR, CONT
     Route: 015
     Dates: start: 20130305, end: 20150125

REACTIONS (9)
  - Shock [Not Recovered/Not Resolved]
  - Ectopic pregnancy with contraceptive device [Recovering/Resolving]
  - Amenorrhoea [Recovering/Resolving]
  - Peritoneal haemorrhage [Recovering/Resolving]
  - Drug ineffective [None]
  - Ruptured ectopic pregnancy [Recovering/Resolving]
  - Metrorrhagia [Recovering/Resolving]
  - Abdominal pain lower [Recovering/Resolving]
  - Vulvovaginal pain [Recovering/Resolving]

NARRATIVE: CASE EVENT DATE: 2015
